FAERS Safety Report 7325252 (Version 3)
Quarter: 2012Q4

REPORT INFORMATION
  Report Type: 
  Country: ES (occurrence: ES)
  Receive Date: 20080212
  Receipt Date: 20121210
  Transmission Date: 20130627
  Serious: Yes (Life-Threatening, Hospitalization)
  Sender: FDA-Public Use
  Company Number: ES-JNJFOC-20080200827

PATIENT
  Age: 61 Year
  Sex: Female

DRUGS (10)
  1. IBUPROFEN [Suspect]
     Indication: PAIN
     Route: 048
     Dates: end: 20071008
  2. ENALAPRIL [Interacting]
     Indication: RENOVASCULAR HYPERTENSION
     Route: 048
     Dates: end: 20071008
  3. METFORMIN [Interacting]
     Indication: DIABETES MELLITUS
     Route: 048
     Dates: start: 200707, end: 20071008
  4. ALDACTONE [Interacting]
     Indication: ASCITES
     Route: 048
     Dates: end: 20071008
  5. TROMALYT [Interacting]
     Indication: CARDIOVASCULAR EVENT PROPHYLAXIS
     Route: 048
     Dates: start: 200707, end: 20071008
  6. OMEPRAZOLE [Concomitant]
     Indication: GASTRITIS PROPHYLAXIS
     Route: 048
  7. PENTOXIFYLLINE [Concomitant]
  8. PAROXETINE [Concomitant]
  9. ALLOPURINOL [Concomitant]
  10. SIMVASTATIN [Concomitant]
     Route: 048

REACTIONS (3)
  - Renal failure acute [Recovered/Resolved]
  - Drug interaction [Recovered/Resolved]
  - Metabolic acidosis [Recovered/Resolved]
